FAERS Safety Report 5215029-3 (Version None)
Quarter: 2007Q1

REPORT INFORMATION
  Report Type: 
  Country: None (occurrence: None)
  Receive Date: 20070117
  Receipt Date: 20070102
  Transmission Date: 20070707
  Serious: Yes (Other)
  Sender: FDA-Public Use
  Company Number: 2007RR-05037

PATIENT
  Sex: Male

DRUGS (2)
  1. SIMVASTATIN [Suspect]
     Indication: HYPERCHOLESTEROLAEMIA
     Dosage: 20 MG, ORAL
     Route: 048
  2. CITALOPRAM HYDROBROMIDE [Concomitant]

REACTIONS (4)
  - ANGIOEDEMA [None]
  - COORDINATION ABNORMAL [None]
  - HEADACHE [None]
  - MALAISE [None]
